FAERS Safety Report 4380873-1 (Version None)
Quarter: 2004Q2

REPORT INFORMATION
  Report Type: 
  Country: None (occurrence: None)
  Receive Date: 20040616
  Receipt Date: 20040428
  Transmission Date: 20050107
  Serious: Yes (Hospitalization)
  Sender: FDA-Public Use
  Company Number: DE_040112909

PATIENT
  Age: 75 Year
  Sex: Female
  Weight: 54 kg

DRUGS (9)
  1. TERIPARATIDE [Suspect]
     Indication: OSTEOPOROSIS
     Dosage: 20 UG DAY
     Dates: start: 20030616, end: 20040120
  2. LISINOPRIL [Concomitant]
  3. SIMVASTATIN [Concomitant]
  4. FLUSPIRILENE [Concomitant]
  5. THEOPHYLLINE [Concomitant]
  6. CALCIUM [Concomitant]
  7. VITAMIN D [Concomitant]
  8. LEVOTHYROXINE SODIUM [Concomitant]
  9. BUDECORT (BUDESONIDE) [Concomitant]

REACTIONS (25)
  - ABDOMINAL PAIN [None]
  - ANOREXIA [None]
  - ARTERIOSCLEROSIS [None]
  - BALANCE DISORDER [None]
  - CONSTIPATION [None]
  - DEMENTIA [None]
  - DEPRESSION [None]
  - DIVERTICULUM INTESTINAL [None]
  - DIZZINESS [None]
  - DRUG TOXICITY [None]
  - ENCEPHALOPATHY [None]
  - FALL [None]
  - GASTRIC ULCER [None]
  - GENERAL PHYSICAL HEALTH DETERIORATION [None]
  - HEART RATE INCREASED [None]
  - HEPATIC STEATOSIS [None]
  - HYPERCALCAEMIA [None]
  - HYPERCHLORAEMIA [None]
  - HYPERHIDROSIS [None]
  - HYPONATRAEMIA [None]
  - NAUSEA [None]
  - NORMAL PRESSURE HYDROCEPHALUS [None]
  - VITAMIN D INCREASED [None]
  - VOMITING [None]
  - WEIGHT DECREASED [None]
